FAERS Safety Report 5355933-9 (Version None)
Quarter: 2007Q2

REPORT INFORMATION
  Report Type: 
  Country: None (occurrence: None)
  Receive Date: 20070530
  Receipt Date: 20070222
  Transmission Date: 20071010
  Serious: Yes (Other)
  Sender: FDA-Public Use
  Company Number: US200702004728

PATIENT
  Age: 30 Year
  Sex: Female
  Weight: 136.1 kg

DRUGS (1)
  1. ZYPREXA [Suspect]
     Dates: start: 19960101

REACTIONS (4)
  - BLOOD CHOLESTEROL INCREASED [None]
  - DIABETES MELLITUS [None]
  - INCREASED APPETITE [None]
  - WEIGHT INCREASED [None]
